FAERS Safety Report 13673151 (Version 1)
Quarter: 2017Q2

REPORT INFORMATION
  Report Type: Spontaneous
  Country: US (occurrence: US)
  Receive Date: 20170621
  Receipt Date: 20170621
  Transmission Date: 20170830
  Serious: Yes (Hospitalization, Other)
  Sender: FDA-Public Use
  Company Number: US-CELGENEUS-USA-20170604834

PATIENT
  Age: 77 Year
  Sex: Female
  Weight: 66.28 kg

DRUGS (1)
  1. REVLIMID [Suspect]
     Active Substance: LENALIDOMIDE
     Indication: MONOCLONAL GAMMOPATHY
     Dosage: 25 MILLIGRAM
     Route: 048
     Dates: start: 20170414

REACTIONS (6)
  - Oedema peripheral [Unknown]
  - Transient ischaemic attack [Unknown]
  - Constipation [Unknown]
  - Cough [Unknown]
  - Transient ischaemic attack [Unknown]
  - Rash [Unknown]

NARRATIVE: CASE EVENT DATE: 201705
